FAERS Safety Report 7833636-6 (Version None)
Quarter: 2011Q4

REPORT INFORMATION
  Report Type: 
  Country: None (occurrence: None)
  Receive Date: 20111024
  Receipt Date: 20111020
  Transmission Date: 20120403
  Serious: Yes (Hospitalization)
  Sender: FDA-Public Use
  Company Number: SE-BRISTOL-MYERS SQUIBB COMPANY-15836943

PATIENT
  Age: 45 Year
  Sex: Male

DRUGS (5)
  1. HYDREA [Suspect]
     Route: 048
     Dates: start: 20110516, end: 20110531
  2. IMOVANE [Concomitant]
     Dosage: TAB
  3. PULMICORT [Concomitant]
     Dosage: PRESSURIZED INHALATION, SUSPENSION
     Route: 055
  4. CONCERTA [Concomitant]
     Dosage: PROLONGED-RELEASE TABLET
  5. BRICANYL [Concomitant]
     Dosage: SOLUTION FOR INJECTION/CONCENTRATE FOR SOLUTION FOR INFUSION

REACTIONS (1)
  - PYODERMA GANGRENOSUM [None]
